FAERS Safety Report 22598741 (Version 4)
Quarter: 2024Q3

REPORT INFORMATION
  Report Type: Report from Study
  Country: US (occurrence: US)
  Receive Date: 20230614
  Receipt Date: 20240906
  Transmission Date: 20241016
  Serious: Yes (Other)
  Sender: ABBVIE
  Company Number: US-ABBVIE-5289118

PATIENT
  Sex: Female

DRUGS (6)
  1. SKYRIZI [Suspect]
     Active Substance: RISANKIZUMAB-RZAA
     Indication: Psoriasis
     Dosage: FORM STRENGTH: 150 MG, WEEK 0
     Route: 058
     Dates: start: 20230601, end: 20230601
  2. SKYRIZI [Suspect]
     Active Substance: RISANKIZUMAB-RZAA
     Indication: Psoriatic arthropathy
     Dosage: FORM STRENGTH: 150 MG, WEEK 4
     Route: 058
     Dates: start: 20230630, end: 20230630
  3. SKYRIZI [Suspect]
     Active Substance: RISANKIZUMAB-RZAA
     Dosage: FORM STRENGTH: 150 MG
     Route: 058
     Dates: start: 20231001
  4. SKYRIZI [Suspect]
     Active Substance: RISANKIZUMAB-RZAA
     Dosage: FORM STRENGTH: 150 MG
     Route: 058
  5. COVID-19 VACCINE NOS [Suspect]
     Active Substance: COVID-19 VACCINE
     Indication: COVID-19 immunisation
     Dosage: BOOSTER
     Route: 030
     Dates: start: 20231129, end: 20231129
  6. Tessalon pearls [Concomitant]
     Indication: Product used for unknown indication

REACTIONS (25)
  - Tendon rupture [Unknown]
  - Candida infection [Not Recovered/Not Resolved]
  - Renal impairment [Unknown]
  - Localised infection [Unknown]
  - Mobility decreased [Unknown]
  - Pain [Unknown]
  - Influenza like illness [Unknown]
  - Glycosylated haemoglobin increased [Unknown]
  - Swollen tongue [Not Recovered/Not Resolved]
  - Inflammation [Not Recovered/Not Resolved]
  - Injection site pain [Unknown]
  - Nephrolithiasis [Unknown]
  - Drug ineffective [Unknown]
  - Psoriasis [Unknown]
  - Injection site erythema [Unknown]
  - Injection site warmth [Unknown]
  - Injection site swelling [Unknown]
  - Chills [Unknown]
  - Psoriatic arthropathy [Unknown]
  - Loss of personal independence in daily activities [Unknown]
  - Grip strength decreased [Unknown]
  - General physical condition abnormal [Unknown]
  - COVID-19 [Unknown]
  - Abdominal pain [Unknown]
  - Post procedural complication [Unknown]

NARRATIVE: CASE EVENT DATE: 20230101
